FAERS Safety Report 9904828 (Version 1)
Quarter: 2014Q1

REPORT INFORMATION
  Report Type: Spontaneous
  Country: US (occurrence: None)
  Receive Date: 20140212
  Receipt Date: 20140212
  Transmission Date: 20141002
  Serious: Yes (Other)
  Sender: FDA-Public Use
  Company Number: None

PATIENT
  Sex: 0

DRUGS (1)
  1. ALDARA [Suspect]
     Dosage: 5 NITESWX6WK BEDTIME  TOPICAL
     Route: 061
     Dates: start: 20140110, end: 20140110

REACTIONS (1)
  - Pruritus generalised [None]
